FAERS Safety Report 7930826-9 (Version None)
Quarter: 2011Q4

REPORT INFORMATION
  Report Type: 
  Country: None (occurrence: None)
  Receive Date: 20111117
  Receipt Date: 20111102
  Transmission Date: 20120403
  Serious: Yes (Hospitalization)
  Sender: FDA-Public Use
  Company Number: DSJ-2011-24385

PATIENT
  Age: 21 Year
  Sex: Male

DRUGS (1)
  1. OLMESARTAN MEDOXOMIL AND HYDROCHLOROTHIZIDE [Suspect]
     Indication: INVESTIGATION
     Dosage: 20/12.5 MG (1 IN 1), PER ORAL
     Route: 048
     Dates: start: 20111101, end: 20111101

REACTIONS (1)
  - APPENDICITIS [None]
